FAERS Safety Report 14574453 (Version 2)
Quarter: 2018Q1

REPORT INFORMATION
  Report Type: Report from Study
  Country: DK (occurrence: DK)
  Receive Date: 20180226
  Receipt Date: 20180305
  Transmission Date: 20180509
  Serious: Yes (Hospitalization)
  Sender: FDA-Public Use
  Company Number: DK-ROCHE-2077469

PATIENT
  Age: 65 Year
  Sex: Male
  Weight: 110 kg

DRUGS (7)
  1. OBINUTUZUMAB. [Suspect]
     Active Substance: OBINUTUZUMAB
     Indication: CHRONIC LYMPHOCYTIC LEUKAEMIA
     Dosage: CYCLE 1: 100 MG, D1; 900 MG, D1(2); 1000 MG, D8+15, Q28D; CYCLES 2-6: 1000 MG, D1, Q28D?LAST DOSE (1
     Route: 042
     Dates: start: 20180122
  2. LOSARSTAD [Concomitant]
     Route: 048
     Dates: start: 20131115
  3. PARACETAMOL [Concomitant]
     Active Substance: ACETAMINOPHEN
     Route: 048
     Dates: start: 20141006
  4. ALLOPURINOL. [Concomitant]
     Active Substance: ALLOPURINOL
     Route: 048
     Dates: start: 20180122
  5. VENETOCLAX. [Suspect]
     Active Substance: VENETOCLAX
     Indication: CHRONIC LYMPHOCYTIC LEUKAEMIA
     Dosage: CYCLE 1: 20 MG (2 TAB. AT 10 MG), D22-28, Q28D; CYCLE 2: 50 MG (1 TABL. AT 50 MG), D1-7; 100 MG (1 T
     Route: 048
     Dates: start: 20180212
  6. IBRUTINIB [Suspect]
     Active Substance: IBRUTINIB
     Indication: CHRONIC LYMPHOCYTIC LEUKAEMIA
     Dosage: CYCLES 1-12: 420 MG, D1-28, Q28D; CYCLES 13-36: 420 MG, D1-28, Q28D?LAST DOSE (420 MG) ADMINISTERED
     Route: 048
     Dates: start: 20180122
  7. FRAGMIN [Concomitant]
     Active Substance: DALTEPARIN SODIUM
     Dosage: DAILY DOSE 18 IE
     Route: 058
     Dates: start: 20180218

REACTIONS (1)
  - Influenza [Recovered/Resolved]

NARRATIVE: CASE EVENT DATE: 20180217
